FAERS Safety Report 19904141 (Version 1)
Quarter: 2021Q3

REPORT INFORMATION
  Report Type: Spontaneous
  Country: CA (occurrence: CA)
  Receive Date: 20210930
  Receipt Date: 20210930
  Transmission Date: 20211014
  Serious: Yes (Other)
  Sender: FDA-Public Use
  Company Number: CA-TEVA-2021-CA-1959046

PATIENT
  Age: 31 Year
  Sex: Female
  Weight: 66 kg

DRUGS (3)
  1. PAROXETINE HYDROCHLORIDE. [Suspect]
     Active Substance: PAROXETINE HYDROCHLORIDE
     Route: 048
  2. LAMICTAL [Suspect]
     Active Substance: LAMOTRIGINE
     Indication: DEPRESSION
     Route: 048
  3. PAROXETINE HYDROCHLORIDE. [Suspect]
     Active Substance: PAROXETINE HYDROCHLORIDE
     Indication: DEPRESSION
     Route: 048

REACTIONS (9)
  - Abnormal dreams [Recovered/Resolved]
  - Amnesia [Recovered/Resolved]
  - Cerebral disorder [Recovered/Resolved]
  - Irritable bowel syndrome [Recovered/Resolved]
  - Abdominal pain [Recovered/Resolved]
  - Disturbance in attention [Recovered/Resolved]
  - Thinking abnormal [Recovered/Resolved]
  - Product use in unapproved indication [Recovered/Resolved]
  - Poisoning [Recovered/Resolved]
